FAERS Safety Report 24438966 (Version 2)
Quarter: 2024Q4

REPORT INFORMATION
  Report Type: Spontaneous
  Country: US (occurrence: US)
  Receive Date: 20241015
  Receipt Date: 20241021
  Transmission Date: 20250115
  Serious: No
  Sender: CHATTEM
  Company Number: US-OPELLA-2024OHG034916

PATIENT
  Sex: Female

DRUGS (1)
  1. SELSUN BLUE MOISTURIZING [Suspect]
     Active Substance: SELENIUM SULFIDE
     Indication: Product used for unknown indication
     Dosage: LOT NUMBER:22L345, EXPIRATION DATE: 31-OCT-2025
     Route: 061

REACTIONS (2)
  - Hair texture abnormal [Unknown]
  - Product formulation issue [Unknown]
